FAERS Safety Report 8448300-2 (Version None)
Quarter: 2012Q2

REPORT INFORMATION
  Report Type: 
  Country: None (occurrence: None)
  Receive Date: 20120619
  Receipt Date: 20120606
  Transmission Date: 20120825
  Serious: Yes (Life-Threatening, Other)
  Sender: FDA-Public Use
  Company Number: JP-ROCHE-1070945

PATIENT
  Sex: Male
  Weight: 54 kg

DRUGS (16)
  1. MOBIC [Concomitant]
     Indication: CANCER PAIN
     Route: 048
     Dates: start: 20120403
  2. TOPOTECAN [Concomitant]
     Indication: COLON CANCER RECURRENT
     Dosage: FOLFIRI THERAPY
     Route: 041
     Dates: start: 20110920, end: 20111018
  3. TOPOTECAN [Concomitant]
     Dosage: FOLFIRI THERAPY
     Route: 041
     Dates: start: 20111101, end: 20111213
  4. FLUOROURACIL [Concomitant]
     Dosage: FOLFOX THERAPY
     Route: 041
     Dates: start: 20120403, end: 20120401
  5. LOXONIN [Concomitant]
     Indication: CANCER PAIN
     Dosage: UNCERTAIN DOSAGE AND SINGLE USE
     Route: 048
     Dates: start: 20120124
  6. AVASTIN [Suspect]
     Route: 041
     Dates: start: 20111227, end: 20120403
  7. FLUOROURACIL [Concomitant]
     Dosage: FOLFOX THERAPY
     Route: 040
     Dates: start: 20111227, end: 20120313
  8. AVASTIN [Suspect]
     Indication: COLON CANCER RECURRENT
     Route: 041
     Dates: start: 20111213, end: 20111213
  9. LEVOLEUCOVORIN CALCIUM [Concomitant]
     Route: 041
     Dates: start: 20111227, end: 20120313
  10. LEVOLEUCOVORIN CALCIUM [Concomitant]
     Route: 041
     Dates: start: 20120403, end: 20120403
  11. FLUOROURACIL [Concomitant]
     Dosage: FOLFOX THERAPY
     Route: 040
     Dates: start: 20120403, end: 20120403
  12. OXALIPLATIN [Concomitant]
     Indication: COLON CANCER RECURRENT
     Dosage: FOLFOX THERAPY
     Route: 041
     Dates: start: 20111227, end: 20120403
  13. FLUOROURACIL [Concomitant]
     Indication: COLON CANCER RECURRENT
     Dosage: FOLFIRI THERAPY
     Route: 040
     Dates: start: 20110920, end: 20111213
  14. FLUOROURACIL [Concomitant]
     Dosage: FOLFIRI THERAPY
     Route: 041
     Dates: start: 20110920, end: 20111201
  15. FLUOROURACIL [Concomitant]
     Dosage: FOLFOX THERAPY
     Route: 041
     Dates: start: 20111227, end: 20120301
  16. LEVOLEUCOVORIN CALCIUM [Concomitant]
     Indication: COLON CANCER RECURRENT
     Route: 041
     Dates: start: 20110920, end: 20111213

REACTIONS (5)
  - ANAEMIA [None]
  - INFECTIOUS PERITONITIS [None]
  - PYREXIA [None]
  - GASTROINTESTINAL PERFORATION [None]
  - GASTROINTESTINAL HAEMORRHAGE [None]
